FAERS Safety Report 21179824 (Version 1)
Quarter: 2022Q3

REPORT INFORMATION
  Report Type: Report from Study
  Country: DO (occurrence: DO)
  Receive Date: 20220805
  Receipt Date: 20220805
  Transmission Date: 20221027
  Serious: Yes (Other)
  Sender: FDA-Public Use
  Company Number: DO-NOVARTISPH-NVSC2022DO173991

PATIENT
  Sex: Female

DRUGS (1)
  1. KISQALI [Suspect]
     Active Substance: RIBOCICLIB
     Indication: Breast cancer
     Dosage: 600 MG, QD
     Route: 048
     Dates: start: 20220421

REACTIONS (10)
  - Gait inability [Unknown]
  - Breast cancer [Unknown]
  - Malignant neoplasm progression [Unknown]
  - Listless [Unknown]
  - Disorientation [Unknown]
  - Pain [Unknown]
  - Conjunctivitis [Unknown]
  - Abdominal distension [Unknown]
  - Fluid intake reduced [Unknown]
  - General physical health deterioration [Unknown]
